FAERS Safety Report 5590843-3 (Version None)
Quarter: 2008Q1

REPORT INFORMATION
  Report Type: 
  Country: None (occurrence: None)
  Receive Date: 20080110
  Receipt Date: 20080103
  Transmission Date: 20080703
  Serious: No
  Sender: FDA-Public Use
  Company Number: 2008-169864-NL

PATIENT
  Age: 36 Year
  Sex: Female

DRUGS (2)
  1. ETONOGESTREL [Suspect]
     Dosage: DF
     Dates: start: 20071130
  2. NORETHISTERONE [Concomitant]

REACTIONS (3)
  - DYSARTHRIA [None]
  - HYPOAESTHESIA ORAL [None]
  - MENORRHAGIA [None]
